FAERS Safety Report 16160633 (Version 2)
Quarter: 2019Q2

REPORT INFORMATION
  Report Type: Spontaneous
  Country: US (occurrence: US)
  Receive Date: 20190405
  Receipt Date: 20190509
  Transmission Date: 20190711
  Serious: Yes (Other)
  Sender: FDA-Public Use
  Company Number: US-ALK-ABELLO A/S-2019AA001281

PATIENT

DRUGS (1)
  1. MOLD MIX A [Suspect]
     Active Substance: ALTERNARIA ALTERNATA\ASPERGILLUS FUMIGATUS\CLADOSPORIUM CLADOSPORIOIDES\PENICILLIUM CHRYSOGENUM VAR. CHRYSOGENUM
     Indication: PRODUCT USED FOR UNKNOWN INDICATION

REACTIONS (1)
  - Hypersensitivity [Recovered/Resolved]

NARRATIVE: CASE EVENT DATE: 20190211
